FAERS Safety Report 25943701 (Version 1)
Quarter: 2025Q4

REPORT INFORMATION
  Report Type: Spontaneous
  Country: US (occurrence: US)
  Receive Date: 20251021
  Receipt Date: 20251021
  Transmission Date: 20260118
  Serious: No
  Sender: TAKEDA
  Company Number: US-TAKEDA-2025TUS090008

PATIENT

DRUGS (1)
  1. ADDERALL XR [Suspect]
     Active Substance: AMPHETAMINE ASPARTATE\AMPHETAMINE SULFATE\DEXTROAMPHETAMINE SACCHARATE\DEXTROAMPHETAMINE SULFATE
     Indication: Attention deficit hyperactivity disorder
     Dosage: UNK

REACTIONS (7)
  - Chronic fatigue syndrome [Unknown]
  - Fibromyalgia [Unknown]
  - Stress [Unknown]
  - Myalgia [Unknown]
  - Discomfort [Unknown]
  - Malnutrition [Unknown]
  - Myofascial pain syndrome [Unknown]
